FAERS Safety Report 19771732 (Version 2)
Quarter: 2021Q3

REPORT INFORMATION
  Report Type: Other
  Country: DE (occurrence: DE)
  Receive Date: 20210831
  Receipt Date: 20210831
  Transmission Date: 20211014
  Serious: Yes (Other)
  Sender: FDA-Public Use
  Company Number: DE-ROCHE-2895731

PATIENT

DRUGS (8)
  1. FLUOROURACIL. [Suspect]
     Active Substance: FLUOROURACIL
     Dosage: CONTINUOUS INFUSION OVER 46 TO 48 HOURS ON DAYS 1 TO 2
     Route: 041
  2. CAPECITABINE. [Suspect]
     Active Substance: CAPECITABINE
     Indication: GASTRIC CANCER
     Dosage: FOR 2 WEEKS, FOLLOWED BY A 1?WEEK REST PERIOD, EVERY 3 WEEKS.
     Route: 048
  3. LEUCOVORIN. [Suspect]
     Active Substance: LEUCOVORIN
     Indication: GASTRIC CANCER
     Route: 042
  4. FLUOROURACIL. [Suspect]
     Active Substance: FLUOROURACIL
     Dosage: ON DAY 1
     Route: 042
  5. OXALIPLATIN. [Suspect]
     Active Substance: OXALIPLATIN
     Dosage: ON DAY 1
     Route: 042
  6. OXALIPLATIN. [Suspect]
     Active Substance: OXALIPLATIN
     Indication: GASTRIC CANCER
     Route: 042
  7. LEUCOVORIN. [Suspect]
     Active Substance: LEUCOVORIN
     Route: 042
  8. FLUOROURACIL. [Suspect]
     Active Substance: FLUOROURACIL
     Indication: GASTRIC CANCER
     Dosage: CONTINUOUS INFUSION OVER 24 HOURS ON DAY 1,
     Route: 041

REACTIONS (20)
  - Amylase increased [Unknown]
  - Nausea [Unknown]
  - Decreased appetite [Unknown]
  - Neutropenia [Unknown]
  - Neutrophil count decreased [Unknown]
  - Thrombocytopenia [Unknown]
  - Neuropathy peripheral [Unknown]
  - Neurotoxicity [Unknown]
  - Drug hypersensitivity [Unknown]
  - Hypersensitivity [Unknown]
  - Diarrhoea [Unknown]
  - Palmar-plantar erythrodysaesthesia syndrome [Unknown]
  - Anaemia [Unknown]
  - Lipase increased [Unknown]
  - Gamma-glutamyltransferase increased [Unknown]
  - White blood cell count decreased [Unknown]
  - Platelet count decreased [Unknown]
  - Peripheral sensory neuropathy [Unknown]
  - Infusion related reaction [Unknown]
  - Anaphylactic reaction [Unknown]
